FAERS Safety Report 4484751-9 (Version None)
Quarter: 2004Q3

REPORT INFORMATION
  Report Type: 
  Country: None (occurrence: None)
  Receive Date: 20040921
  Receipt Date: 20031119
  Transmission Date: 20050211
  Serious: Yes (Hospitalization)
  Sender: FDA-Public Use
  Company Number: 163-20785-03110416(0)

PATIENT
  Age: 52 Year
  Sex: Female

DRUGS (10)
  1. THALOMID [Suspect]
     Indication: MULTIPLE MYELOMA
     Dosage: 50 MG, DAILY, ORAL; 200 MG, ONCE ORAL
     Route: 048
     Dates: start: 20020409, end: 20020409
  2. THALOMID [Suspect]
     Indication: MULTIPLE MYELOMA
     Dosage: 50 MG, DAILY, ORAL; 200 MG, ONCE ORAL
     Route: 048
     Dates: start: 20020530
  3. MELPHALAN (MELPHALAN) [Suspect]
     Indication: MULTIPLE MYELOMA
     Dosage: 200 MG/M2, ONCE, INTRAVENOUS
     Route: 042
     Dates: start: 20020514, end: 20020514
  4. MELPHALAN (MELPHALAN) [Suspect]
     Indication: MULTIPLE MYELOMA
     Dosage: 200 MG/M2, ONCE, INTRAVENOUS
     Route: 042
     Dates: start: 20021209, end: 20021209
  5. DEXAMETHASONE [Suspect]
     Indication: MULTIPLE MYELOMA
     Dosage: DAILY, ORAL
     Route: 048
     Dates: start: 20020409, end: 20020409
  6. DEXAMETHASONE [Suspect]
     Indication: MULTIPLE MYELOMA
     Dosage: DAILY, ORAL
     Route: 048
     Dates: start: 20020530
  7. CISPLATIN [Concomitant]
  8. DOXORUBICIN HCL [Concomitant]
  9. ETOPOSIDE [Concomitant]
  10. CYCLOPHOSPHAMIDE [Concomitant]

REACTIONS (1)
  - FEBRILE NEUTROPENIA [None]
